FAERS Safety Report 8462427 (Version 3)
Quarter: 2012Q4

REPORT INFORMATION
  Report Type: 
  Country: US (occurrence: US)
  Receive Date: 20120316
  Receipt Date: 20121010
  Transmission Date: 20130627
  Serious: Yes (Hospitalization)
  Sender: FDA-Public Use
  Company Number: US-BAYER-2012-024513

PATIENT
  Age: 22 Year
  Sex: Female

DRUGS (4)
  1. YAZ [Suspect]
     Indication: MENSTRUATION IRREGULAR
     Dosage: UNK
     Dates: start: 200610, end: 200710
  2. ANTIBIOTICS [Concomitant]
  3. NSAID^S [Concomitant]
  4. ASTHMA MEDICATIONS [Concomitant]

REACTIONS (11)
  - Pulmonary embolism [None]
  - Deep vein thrombosis [None]
  - Thrombophlebitis superficial [None]
  - Upper extremity mass [None]
  - Chest pain [None]
  - Chest discomfort [None]
  - Haemoptysis [None]
  - Panic attack [None]
  - Dyspnoea [None]
  - Fear [None]
  - Quality of life decreased [None]
